FAERS Safety Report 19001531 (Version 4)
Quarter: 2022Q1

REPORT INFORMATION
  Report Type: Spontaneous
  Country: US (occurrence: None)
  Receive Date: 20210312
  Receipt Date: 20220203
  Transmission Date: 20220423
  Serious: Yes (Other)
  Sender: FDA-Public Use
  Company Number: US-FARMAPROD-202007-0953

PATIENT
  Age: 73 Year
  Sex: Female
  Weight: 79.450 kg

DRUGS (30)
  1. OXERVATE [Suspect]
     Active Substance: CENEGERMIN-BKBJ
     Indication: Neurotrophic keratopathy
     Route: 047
     Dates: start: 20200603, end: 20200729
  2. OXERVATE [Suspect]
     Active Substance: CENEGERMIN-BKBJ
     Indication: Ulcerative keratitis
     Route: 047
     Dates: start: 20201130, end: 20210125
  3. OXERVATE [Suspect]
     Active Substance: CENEGERMIN-BKBJ
     Route: 047
     Dates: start: 20210709, end: 20210903
  4. OXERVATE [Suspect]
     Active Substance: CENEGERMIN-BKBJ
     Route: 047
     Dates: start: 20211207
  5. COSOPT PF [Concomitant]
     Active Substance: DORZOLAMIDE HYDROCHLORIDE\TIMOLOL MALEATE
     Dosage: 2%-0.5% DROPERETTE
  6. ZIOPTAN [Concomitant]
     Active Substance: TAFLUPROST
     Dosage: DROPERETTE
  7. MOXIFLOXACIN [Concomitant]
     Active Substance: MOXIFLOXACIN
     Indication: Contact lens therapy
  8. DUREZOL [Concomitant]
     Active Substance: DIFLUPREDNATE
  9. PRILOSEC [Concomitant]
     Active Substance: OMEPRAZOLE MAGNESIUM
     Dosage: DELAY RELEASE TABLET
  10. CALCIUM-VITAMINE [Concomitant]
  11. SACCHAROMYCES CEREVISIAE [Concomitant]
     Active Substance: SACCHAROMYCES CEREVISIAE
  12. DOXYCYCLINE HYCLATE [Concomitant]
     Active Substance: DOXYCYCLINE HYCLATE
  13. FAMCICLOVIR [Concomitant]
     Active Substance: FAMCICLOVIR
  14. JANUVIA [Concomitant]
     Active Substance: SITAGLIPTIN PHOSPHATE
  15. ALPRAZOLAM [Concomitant]
     Active Substance: ALPRAZOLAM
  16. JARDIANCE [Concomitant]
     Active Substance: EMPAGLIFLOZIN
  17. GLIPIZIDE [Concomitant]
     Active Substance: GLIPIZIDE
  18. CYCLOSPORINE IN KLARITY [Concomitant]
  19. ATROPINE SULFATE [Concomitant]
     Active Substance: ATROPINE SULFATE
  20. TOBRAMYCIN [Concomitant]
     Active Substance: TOBRAMYCIN
  21. TYRVAYA [Concomitant]
     Active Substance: VARENICLINE TARTRATE
     Dosage: 0.03 SPRAY
  22. VANCOMYCIN HYDROCHLORIDE [Concomitant]
     Active Substance: VANCOMYCIN HYDROCHLORIDE
  23. TOBRADEX [Concomitant]
     Active Substance: DEXAMETHASONE\TOBRAMYCIN
     Dosage: 0.3%-0.1%
  24. XIIDRA [Concomitant]
     Active Substance: LIFITEGRAST
  25. AZASITE [Concomitant]
     Active Substance: AZITHROMYCIN MONOHYDRATE
  26. TYLENOL [Concomitant]
     Active Substance: ACETAMINOPHEN
  27. STIMUL EYES [Concomitant]
     Indication: Dry eye
     Dates: start: 20211103, end: 20211207
  28. PREDNISOLONE [Concomitant]
     Active Substance: PREDNISOLONE
     Indication: Surgery
     Dates: start: 20210310
  29. TIMOPTIC [Concomitant]
     Active Substance: TIMOLOL MALEATE
     Indication: Glaucoma
     Dates: start: 20200630
  30. MOXIFLOXACIN [Concomitant]
     Active Substance: MOXIFLOXACIN
     Indication: Lens disorder
     Dates: start: 20201113, end: 20211209

REACTIONS (6)
  - Eye infection staphylococcal [Recovering/Resolving]
  - Off label use [Unknown]
  - Eye pain [Recovering/Resolving]
  - Ocular discomfort [Recovering/Resolving]
  - Corneal erosion [Not Recovered/Not Resolved]
  - Product dose omission issue [Unknown]

NARRATIVE: CASE EVENT DATE: 20210608
